FAERS Safety Report 7554347-0 (Version None)
Quarter: 2011Q2

REPORT INFORMATION
  Report Type: 
  Country: None (occurrence: None)
  Receive Date: 20110617
  Receipt Date: 20110610
  Transmission Date: 20111010
  Serious: Yes (Hospitalization)
  Sender: FDA-Public Use
  Company Number: CA-AMGEN-CANCT2011029961

PATIENT
  Age: 63 Year
  Sex: Female
  Weight: 88.8 kg

DRUGS (20)
  1. COLACE [Concomitant]
     Indication: CONSTIPATION
     Dosage: 100 MG, UNK
     Route: 048
     Dates: start: 20110409, end: 20110410
  2. FLUOROURACIL [Concomitant]
     Indication: COLORECTAL CANCER
  3. LEUCOVORIN CALCIUM [Concomitant]
     Indication: COLORECTAL CANCER
  4. HYDRAPHASE XL [Concomitant]
     Indication: LIP DRY
     Dosage: UNK
     Route: 061
     Dates: start: 20110503
  5. ATIVAN [Concomitant]
     Indication: ANXIETY
     Route: 060
     Dates: start: 20110420
  6. DEXAMETHASONE [Concomitant]
     Indication: NAUSEA
     Dosage: UNK
     Route: 048
     Dates: start: 20110421
  7. XYLOCAINE [Concomitant]
     Indication: STOMATITIS
     Dosage: UNK
     Route: 048
     Dates: start: 20110503, end: 20110512
  8. ONDANSETRON [Concomitant]
     Indication: NAUSEA
     Dosage: 8 MG, UNK
     Route: 050
     Dates: start: 20110407
  9. MAGNESIUM [Concomitant]
     Indication: HYPOMAGNESAEMIA
     Dosage: 30 ML, UNK
     Route: 048
     Dates: start: 20110503
  10. NYSTATIN [Concomitant]
     Indication: STOMATITIS
     Dosage: UNK
     Dates: start: 20110503, end: 20110512
  11. METOCLOPRAMIDE [Concomitant]
     Indication: NAUSEA
     Dosage: 10 MG, UNK
     Route: 050
     Dates: start: 20110424
  12. HYDROCORTISONE [Concomitant]
     Indication: RASH
     Dosage: UNK
     Route: 061
     Dates: start: 20110406
  13. IMODIUM [Concomitant]
     Indication: DIARRHOEA
     Dosage: 2 MG, UNK
     Route: 048
     Dates: start: 20110501
  14. PANITUMUMAB [Suspect]
     Indication: COLORECTAL CANCER
     Dosage: 533 MG, UNK
  15. OXALIPLATIN [Concomitant]
     Indication: COLORECTAL CANCER
  16. CALCIUM CARBONATE [Concomitant]
     Dosage: UNK
     Route: 048
     Dates: start: 20040615, end: 20110430
  17. ZANTAC [Concomitant]
     Indication: GASTROOESOPHAGEAL REFLUX DISEASE
     Dosage: 150 MG, UNK
     Route: 048
     Dates: start: 20110430
  18. REACTINE [Concomitant]
     Indication: CONTRAST MEDIA ALLERGY
     Route: 048
     Dates: start: 20110524, end: 20110524
  19. MEDROL [Concomitant]
     Indication: CONTRAST MEDIA ALLERGY
     Route: 048
     Dates: start: 20110524, end: 20110524
  20. DOXYCYCLINE [Concomitant]
     Indication: RASH
     Dosage: 100 MG, UNK
     Route: 048
     Dates: start: 20110408

REACTIONS (4)
  - MELAENA [None]
  - DEHYDRATION [None]
  - FATIGUE [None]
  - THROMBOSIS IN DEVICE [None]
